FAERS Safety Report 6803099-8 (Version None)
Quarter: 2010Q2

REPORT INFORMATION
  Report Type: 
  Country: None (occurrence: None)
  Receive Date: 20100628
  Receipt Date: 20100617
  Transmission Date: 20101027
  Serious: Yes (Death, Hospitalization)
  Sender: FDA-Public Use
  Company Number: A0795093A

PATIENT
  Age: 60 Year
  Sex: Male
  Weight: 74.1 kg

DRUGS (8)
  1. AVANDIA [Suspect]
     Dosage: 8MG PER DAY
     Route: 048
     Dates: end: 20060712
  2. GLUCOTROL XL [Concomitant]
  3. PRAVACHOL [Concomitant]
  4. LANTUS [Concomitant]
  5. ZOCOR [Concomitant]
  6. GLIPIZIDE [Concomitant]
  7. DIOVAN [Concomitant]
  8. COREG [Concomitant]

REACTIONS (4)
  - ARTERIOSCLEROSIS [None]
  - CEREBROVASCULAR ACCIDENT [None]
  - CORONARY ARTERY DISEASE [None]
  - MYOCARDIAL INFARCTION [None]
